FAERS Safety Report 16725581 (Version 1)
Quarter: 2019Q3

REPORT INFORMATION
  Report Type: Report from Study
  Country: None (occurrence: BR)
  Receive Date: 20190821
  Receipt Date: 20190821
  Transmission Date: 20191005
  Serious: Yes (Hospitalization)
  Sender: FDA-Public Use
  Company Number: BR-ABBVIE-19P-020-2894606-00

PATIENT
  Sex: Female
  Weight: 90 kg

DRUGS (12)
  1. FRONTAL [Concomitant]
     Active Substance: ALPRAZOLAM
     Indication: SLEEP DISORDER
     Dosage: ^1^ AT NIGHT
     Route: 048
     Dates: start: 201906
  2. CARBOLITIUM [Concomitant]
     Active Substance: LITHIUM CARBONATE
     Indication: PRODUCT USED FOR UNKNOWN INDICATION
     Dosage: PATIENT HAS ALWAYS TAKEN IT
  3. DIVALCON ER [Suspect]
     Active Substance: DIVALPROEX SODIUM
     Dosage: AT NIGHT; RESUMED TO DEPAKOTE ER THERAPY
     Route: 048
  4. DIVALPROEX SODIUM. [Concomitant]
     Active Substance: DIVALPROEX SODIUM
     Dosage: DRUG RESUMED AFTER EVENTS; TAKEN AT NIGHT
     Route: 048
  5. ARISTAB [Concomitant]
     Active Substance: ARIPIPRAZOLE
     Indication: ILL-DEFINED DISORDER
     Dosage: TAKEN ONCE AT NIGHT
     Route: 048
     Dates: start: 201906
  6. DIVALCON ER [Suspect]
     Active Substance: DIVALPROEX SODIUM
     Indication: BIPOLAR DISORDER
     Dosage: 1 TAKEN AT NIGHT
     Route: 048
     Dates: start: 201806
  7. DIVALCON ER [Suspect]
     Active Substance: DIVALPROEX SODIUM
     Dosage: AT NIGHT
     Route: 048
  8. DIVALPROEX SODIUM. [Concomitant]
     Active Substance: DIVALPROEX SODIUM
     Dosage: WHEN SHE DISCOVERED DIVALCON THE POSOLOGY CHANGED
     Route: 048
  9. DIVALPROEX SODIUM. [Concomitant]
     Active Substance: DIVALPROEX SODIUM
     Dosage: TAKEN WITH DIVALCON 250 MG
     Route: 048
  10. DIVALPROEX SODIUM. [Concomitant]
     Active Substance: DIVALPROEX SODIUM
     Indication: BIPOLAR DISORDER
     Dosage: DRUG RESUMED AFTER EVENTS; TAKEN AT NIGHT
     Route: 048
  11. DIVALCON ER [Suspect]
     Active Substance: DIVALPROEX SODIUM
     Dosage: TAKEN TOGETHER WITH DEPAKOTE ER (250 MG)
     Route: 048
     Dates: start: 201806
  12. DIVALPROEX SODIUM. [Concomitant]
     Active Substance: DIVALPROEX SODIUM
     Dosage: TAKEN WITH DIVALCON 500 MG
     Route: 048

REACTIONS (3)
  - Abnormal behaviour [Recovered/Resolved]
  - Aggression [Recovered/Resolved]
  - Insomnia [Recovered/Resolved]
